FAERS Safety Report 7250681-2 (Version None)
Quarter: 2011Q1

REPORT INFORMATION
  Report Type: 
  Country: None (occurrence: None)
  Receive Date: 20110128
  Receipt Date: 20110125
  Transmission Date: 20110831
  Serious: Yes (Death, Hospitalization, Other)
  Sender: FDA-Public Use
  Company Number: PHHY2010JP81235

PATIENT
  Sex: Female
  Weight: 65 kg

DRUGS (3)
  1. EPIRUBICIN [Concomitant]
  2. ENDOXAN [Concomitant]
  3. ZOMETA [Suspect]
     Indication: METASTASES TO BONE
     Dosage: 4 MG, QMO
     Route: 041
     Dates: start: 20080714

REACTIONS (16)
  - RED BLOOD CELL COUNT DECREASED [None]
  - HAEMOGLOBIN DECREASED [None]
  - SWELLING [None]
  - BONE DISORDER [None]
  - TOOTH LOSS [None]
  - GINGIVAL ERYTHEMA [None]
  - WHITE BLOOD CELL COUNT DECREASED [None]
  - PNEUMONIA ASPIRATION [None]
  - OSTEOMYELITIS [None]
  - PERIODONTITIS [None]
  - ORAL PAIN [None]
  - PURULENT DISCHARGE [None]
  - BLOOD UREA INCREASED [None]
  - BLOOD GLUCOSE INCREASED [None]
  - PLATELET COUNT DECREASED [None]
  - HAEMATOCRIT DECREASED [None]
